FAERS Safety Report 6216280-6 (Version None)
Quarter: 2009Q2

REPORT INFORMATION
  Report Type: 
  Country: None (occurrence: None)
  Receive Date: 20090605
  Receipt Date: 20090603
  Transmission Date: 20091009
  Serious: Yes (Hospitalization)
  Sender: FDA-Public Use
  Company Number: B0577426A

PATIENT
  Sex: Male

DRUGS (6)
  1. RYTMONORM [Suspect]
     Indication: ATRIAL FIBRILLATION
     Dosage: 140MG PER DAY
     Route: 042
     Dates: start: 20090518, end: 20090518
  2. UNKNOWN DRUG [Concomitant]
  3. ATENOL [Concomitant]
  4. COUMADIN [Concomitant]
  5. TRITEC [Concomitant]
  6. UNKNOWN DRUG [Concomitant]

REACTIONS (2)
  - HYPERHIDROSIS [None]
  - HYPOTENSION [None]
